FAERS Safety Report 8762725 (Version 1)
Quarter: 2012Q4

REPORT INFORMATION
  Report Type: 
  Country: GB (occurrence: GB)
  Receive Date: 20120831
  Receipt Date: 20120831
  Transmission Date: 20130627
  Serious: Yes (Other)
  Sender: FDA-Public Use
  Company Number: GB-ROCHE-1109098

PATIENT
  Age: 86 Year
  Sex: Male

DRUGS (5)
  1. LUCENTIS [Suspect]
     Indication: AGE-RELATED MACULAR DEGENERATION
     Route: 050
     Dates: start: 20111121
  2. BENDROFLUAZIDE [Concomitant]
  3. FELODIPINE [Concomitant]
  4. ASPIRIN [Concomitant]
  5. OPTREX (UNITED KINGDOM) [Concomitant]

REACTIONS (2)
  - Transient ischaemic attack [Recovered/Resolved]
  - Malaise [Unknown]
